FAERS Safety Report 11223829 (Version 2)
Quarter: 2015Q3

REPORT INFORMATION
  Report Type: Spontaneous
  Country: US (occurrence: US)
  Receive Date: 20150629
  Receipt Date: 20150717
  Transmission Date: 20151125
  Serious: Yes (Death)
  Sender: FDA-Public Use
  Company Number: US-BEH-2015051960

PATIENT
  Age: 70 Year
  Sex: Male

DRUGS (1)
  1. HIZENTRA [Suspect]
     Active Substance: HUMAN IMMUNOGLOBULIN G
     Indication: IMMUNODEFICIENCY COMMON VARIABLE
     Dosage: 4 GM
     Route: 058
     Dates: start: 20140130, end: 20150526

REACTIONS (3)
  - Vomiting [Unknown]
  - Cardiac arrest [Fatal]
  - Nausea [Unknown]

NARRATIVE: CASE EVENT DATE: 20150603
